FAERS Safety Report 17196220 (Version 1)
Quarter: 2019Q4

REPORT INFORMATION
  Report Type: Spontaneous
  Country: GB (occurrence: GB)
  Receive Date: 20191224
  Receipt Date: 20191224
  Transmission Date: 20200122
  Serious: Yes (Death, Life-Threatening, Hospitalization, Disabling, Congenital Anomaly, Other)
  Sender: FDA-Public Use
  Company Number: GB-TAKEDA-2019TUS072345

PATIENT
  Age: 73 Year
  Sex: Male

DRUGS (15)
  1. BISOPROLOL FUMARATE. [Concomitant]
     Active Substance: BISOPROLOL FUMARATE
     Indication: HEART RATE DECREASED
     Dosage: 2.5 MILLIGRAM
     Route: 065
     Dates: end: 20190904
  2. RITUXIMAB. [Concomitant]
     Active Substance: RITUXIMAB
     Dosage: UNK
     Route: 065
  3. PIPERACILLIN SODIUM [Concomitant]
     Active Substance: PIPERACILLIN SODIUM
     Dosage: UNK
     Route: 065
  4. ACICLOVIR [Concomitant]
     Active Substance: ACYCLOVIR
     Dosage: 800 MILLIGRAM, QD
     Route: 065
  5. FUROSEMIDE. [Concomitant]
     Active Substance: FUROSEMIDE
     Dosage: 40 MILLIGRAM, QD
     Route: 065
     Dates: start: 20190821
  6. VENETOCLAX. [Suspect]
     Active Substance: VENETOCLAX
     Dosage: 80 MILLIGRAM, QD
     Route: 048
     Dates: start: 20190817, end: 20190902
  7. RAMIPRIL. [Concomitant]
     Active Substance: RAMIPRIL
     Indication: HYPOTENSION
     Dosage: 1.25 MILLIGRAM
     Route: 065
  8. VENETOCLAX. [Suspect]
     Active Substance: VENETOCLAX
     Indication: CHRONIC LYMPHOCYTIC LEUKAEMIA
     Dosage: 20 MILLIGRAM, QD
     Route: 048
     Dates: start: 20190802, end: 20190808
  9. RASBURICASE [Concomitant]
     Active Substance: RASBURICASE
     Dosage: 6 MILLIGRAM
     Route: 065
     Dates: start: 20190802
  10. FEBUXOSTAT. [Suspect]
     Active Substance: FEBUXOSTAT
     Indication: TUMOUR LYSIS SYNDROME
     Dosage: 80 MILLIGRAM, QD
     Route: 048
     Dates: start: 20190817, end: 20190902
  11. ATORVASTATIN CALCIUM. [Concomitant]
     Active Substance: ATORVASTATIN CALCIUM
     Dosage: 40 MILLIGRAM, QD
     Route: 048
     Dates: start: 20190904
  12. EPLERENONE. [Concomitant]
     Active Substance: EPLERENONE
     Indication: HYPOTENSION
     Dosage: 12.5 MILLIGRAM
     Route: 065
  13. COTRIMOXAZOLE [Concomitant]
     Active Substance: SULFAMETHOXAZOLE\TRIMETHOPRIM
     Dosage: 960 MILLIGRAM, QOD
     Route: 065
     Dates: start: 201602, end: 20190821
  14. VENETOCLAX. [Suspect]
     Active Substance: VENETOCLAX
     Dosage: 50 MILLIGRAM, QD
     Route: 048
     Dates: start: 20190809, end: 20190816
  15. ALLOPURINOL. [Suspect]
     Active Substance: ALLOPURINOL
     Indication: TUMOUR LYSIS SYNDROME
     Dosage: 300 MILLIGRAM, QD
     Route: 048
     Dates: start: 201602, end: 20190815

REACTIONS (19)
  - Product use in unapproved indication [Recovered/Resolved]
  - Folliculitis [Fatal]
  - Rash pruritic [Fatal]
  - Condition aggravated [Fatal]
  - Pancytopenia [Fatal]
  - Oedema peripheral [Fatal]
  - Angina pectoris [Fatal]
  - Chest pain [Fatal]
  - Cardiac failure [Fatal]
  - Dyspnoea [Fatal]
  - Heart rate abnormal [Fatal]
  - Acute kidney injury [Fatal]
  - Skin disorder [Fatal]
  - Toxic epidermal necrolysis [Fatal]
  - Blister [Fatal]
  - Anaemia [Fatal]
  - Erythema [Fatal]
  - Skin exfoliation [Fatal]
  - Skin weeping [Fatal]

NARRATIVE: CASE EVENT DATE: 20190726
